FAERS Safety Report 7388290-7 (Version None)
Quarter: 2011Q1

REPORT INFORMATION
  Report Type: 
  Country: None (occurrence: None)
  Receive Date: 20110329
  Receipt Date: 20110329
  Transmission Date: 20110831
  Serious: No
  Sender: FDA-Public Use
  Company Number: None

PATIENT
  Sex: Male
  Weight: 103.8737 kg

DRUGS (1)
  1. SERTRALINE HYDROCHLORIDE [Suspect]
     Indication: DEPRESSION
     Dosage: 100MG Q DAY ORAL TAB ONLY TOOK FOR A FEW DAYS
     Route: 048
     Dates: start: 20090108

REACTIONS (4)
  - PRODUCT SUBSTITUTION ISSUE [None]
  - FATIGUE [None]
  - SOMNOLENCE [None]
  - NAUSEA [None]
